FAERS Safety Report 26048860 (Version 2)
Quarter: 2025Q4

REPORT INFORMATION
  Report Type: Report from Study
  Country: US (occurrence: US)
  Receive Date: 20251115
  Receipt Date: 20251203
  Transmission Date: 20260117
  Serious: Yes (Other)
  Sender: ALEXION PHARMACEUTICALS
  Company Number: 202510NAM009634US

PATIENT
  Sex: Female

DRUGS (1)
  1. OLAPARIB [Suspect]
     Active Substance: OLAPARIB
     Indication: Breast cancer female
     Dosage: 300 MILLIGRAM, BID
     Dates: start: 202509

REACTIONS (6)
  - Abdominal discomfort [Unknown]
  - Myalgia [Unknown]
  - Full blood count abnormal [Unknown]
  - Syncope [Unknown]
  - Asthenia [Unknown]
  - Arthralgia [Unknown]
